FAERS Safety Report 13059030 (Version 2)
Quarter: 2016Q4

REPORT INFORMATION
  Report Type: Spontaneous
  Country: US (occurrence: US)
  Receive Date: 20161223
  Receipt Date: 20161230
  Transmission Date: 20170207
  Serious: Yes (Other)
  Sender: FDA-Public Use
  Company Number: US-HORIZON-RAV-0278-2016

PATIENT
  Age: 2 Year
  Sex: Male

DRUGS (3)
  1. RAVICTI [Suspect]
     Active Substance: GLYCEROL PHENYLBUTYRATE
     Indication: ORNITHINE TRANSCARBAMOYLASE DEFICIENCY
     Dosage: 1.5 ML BID, INCREASED TO 1.55 ML TID
  2. FOLIC ACID. [Concomitant]
     Active Substance: FOLIC ACID
  3. CARNITINE [Concomitant]
     Active Substance: CARNITINE
     Dosage: 3 ML, BID

REACTIONS (2)
  - Amino acid level decreased [Unknown]
  - Speech disorder developmental [Unknown]
